FAERS Safety Report 8109058-X (Version None)
Quarter: 2012Q1

REPORT INFORMATION
  Report Type: 
  Country: None (occurrence: None)
  Receive Date: 20120202
  Receipt Date: 20120127
  Transmission Date: 20120608
  Serious: Yes (Hospitalization, Congenital Anomaly, Other)
  Sender: FDA-Public Use
  Company Number: FR-PFIZER INC-2012022449

PATIENT
  Sex: Male

DRUGS (7)
  1. EFFEXOR XR [Suspect]
     Dosage: 75 MG, 3X/DAY
     Route: 064
     Dates: start: 20100818, end: 20100922
  2. ABILIFY [Suspect]
     Dosage: UNK
     Route: 064
     Dates: start: 20100922, end: 20100930
  3. OXAZEPAM [Concomitant]
     Dosage: UNK
     Dates: start: 20110101, end: 20110426
  4. SERTRALINE HYDROCHLORIDE [Suspect]
     Dosage: UNK
     Route: 064
     Dates: start: 20100922, end: 20100930
  5. RISPERDAL [Suspect]
     Dosage: 5 MG DAILY
     Route: 064
     Dates: start: 20110101, end: 20110426
  6. LOXAPINE HCL [Concomitant]
     Dosage: UNK
     Dates: start: 20110418, end: 20110426
  7. RISPERDAL [Suspect]
     Dosage: 5 MG DAILY
     Route: 064
     Dates: start: 20100818, end: 20100922

REACTIONS (4)
  - WEIGHT GAIN POOR [None]
  - ATRIAL SEPTAL DEFECT [None]
  - FEEDING DISORDER NEONATAL [None]
  - MATERNAL EXPOSURE DURING PREGNANCY [None]
